FAERS Safety Report 23898358 (Version 1)
Quarter: 2024Q2

REPORT INFORMATION
  Report Type: Report from Study
  Country: US (occurrence: US)
  Receive Date: 20240524
  Receipt Date: 20240524
  Transmission Date: 20240715
  Serious: Yes (Hospitalization)
  Sender: FDA-Public Use
  Company Number: US-JAZZ PHARMACEUTICALS-2024-US-008059

PATIENT
  Sex: Male

DRUGS (1)
  1. EPIDIOLEX [Suspect]
     Active Substance: CANNABIDIOL
     Indication: Infantile spasms
     Dosage: 1.3 MILLILITER, BID
     Route: 048
     Dates: start: 202208

REACTIONS (3)
  - Hospitalisation [Unknown]
  - Product administration interrupted [Unknown]
  - Off label use [Unknown]

NARRATIVE: CASE EVENT DATE: 20240101
